FAERS Safety Report 14126269 (Version 1)
Quarter: 2017Q4

REPORT INFORMATION
  Report Type: Not Available
  Country: US (occurrence: US)
  Receive Date: 20171025
  Receipt Date: 20171025
  Transmission Date: 20180321
  Serious: No
  Sender: FDA-Public Use
  Company Number: US-NEUROCRINE BIOSCIENCES INC.-2017NBI01163

PATIENT
  Age: 42 Year
  Sex: Female
  Weight: 70.82 kg

DRUGS (12)
  1. TRAZODONE [Concomitant]
     Active Substance: TRAZODONE HYDROCHLORIDE
     Dosage: AT BEDTIME (WHICH HAS BEEN LOWERED)
  2. AMBIEN [Concomitant]
     Active Substance: ZOLPIDEM TARTRATE
  3. INGREZZA [Suspect]
     Active Substance: VALBENAZINE
     Indication: TARDIVE DYSKINESIA
     Route: 048
     Dates: start: 20170824, end: 201709
  4. MORPHINE SULFATE ER [Concomitant]
     Active Substance: MORPHINE SULFATE
  5. OXYCODONE [Concomitant]
     Active Substance: OXYCODONE
     Dosage: 10/325MG
  6. PROAIR HFA [Concomitant]
     Active Substance: ALBUTEROL SULFATE
     Dosage: UP TO 4-6 PUFFS/DAY
  7. LAMICTAL [Concomitant]
     Active Substance: LAMOTRIGINE
     Dosage: 2 IN AM
  8. VREYLAR [Concomitant]
     Dosage: AT BEDTIME
  9. YUVASEM [Concomitant]
  10. INGREZZA [Suspect]
     Active Substance: VALBENAZINE
     Route: 048
     Dates: start: 20170907
  11. BACLOFEN. [Concomitant]
     Active Substance: BACLOFEN
     Dosage: OFTEN BREAKS IN HALF
  12. MEMANTINE. [Concomitant]
     Active Substance: MEMANTINE
     Dosage: AT BEDTIME

REACTIONS (1)
  - Somnolence [Not Recovered/Not Resolved]

NARRATIVE: CASE EVENT DATE: 20170824
